FAERS Safety Report 8813390 (Version 1)
Quarter: 2012Q4

REPORT INFORMATION
  Report Type: 
  Country: US (occurrence: US)
  Receive Date: 20120927
  Receipt Date: 20120927
  Transmission Date: 20130627
  Serious: No
  Sender: FDA-Public Use
  Company Number: US-AMGEN-USASP2012049817

PATIENT
  Sex: Female
  Weight: 54.42 kg

DRUGS (5)
  1. PROLIA [Suspect]
     Indication: OSTEOPOROSIS POSTMENOPAUSAL
     Dosage: UNK
     Route: 058
  2. PROLIA [Suspect]
  3. SIMVASTATIN [Concomitant]
  4. CALCIUM [Concomitant]
  5. SYNTHROID [Concomitant]

REACTIONS (2)
  - Thyroid function test abnormal [Unknown]
  - Weight increased [Unknown]
